FAERS Safety Report 23621072 (Version 3)
Quarter: 2024Q2

REPORT INFORMATION
  Report Type: Spontaneous
  Country: NL (occurrence: NL)
  Receive Date: 20240312
  Receipt Date: 20240403
  Transmission Date: 20240716
  Serious: Yes (Hospitalization)
  Sender: FDA-Public Use
  Company Number: NL-GILEAD-2024-0663834

PATIENT
  Sex: Male
  Weight: 83 kg

DRUGS (27)
  1. CARBOPLATIN [Suspect]
     Active Substance: CARBOPLATIN
     Dosage: 510 MG
     Route: 042
     Dates: start: 20240219, end: 20240219
  2. CARBOPLATIN [Suspect]
     Active Substance: CARBOPLATIN
     Dosage: 526.35 MG
     Route: 042
     Dates: start: 20240130, end: 20240130
  3. CARBOPLATIN [Suspect]
     Active Substance: CARBOPLATIN
     Indication: Non-small cell lung cancer metastatic
     Dosage: 550 MG
     Route: 042
     Dates: start: 20240108, end: 20240108
  4. CARBOPLATIN [Suspect]
     Active Substance: CARBOPLATIN
     Dosage: 560 MG
     Route: 042
     Dates: start: 20231219
  5. PEMETREXED [Suspect]
     Active Substance: PEMETREXED
     Indication: Non-small cell lung cancer metastatic
     Dosage: 1050 MG
     Route: 042
     Dates: start: 20240219, end: 20240219
  6. PEMETREXED [Suspect]
     Active Substance: PEMETREXED
     Dosage: 1050 MG
     Route: 042
     Dates: start: 20231219, end: 20231219
  7. PEMETREXED [Suspect]
     Active Substance: PEMETREXED
     Dosage: 1050 MG
     Route: 042
     Dates: start: 20240108, end: 20240108
  8. PEMETREXED [Suspect]
     Active Substance: PEMETREXED
     Dosage: 540 MG
     Route: 042
     Dates: start: 20240130, end: 20240130
  9. PEMBROLIZUMAB [Suspect]
     Active Substance: PEMBROLIZUMAB
     Indication: Non-small cell lung cancer metastatic
     Dosage: 200 MG
     Route: 042
     Dates: start: 20240219, end: 20240219
  10. PEMBROLIZUMAB [Suspect]
     Active Substance: PEMBROLIZUMAB
     Dosage: 200 MG
     Route: 042
     Dates: start: 20231219, end: 20231219
  11. PEMBROLIZUMAB [Suspect]
     Active Substance: PEMBROLIZUMAB
     Dosage: 200 MG
     Route: 042
     Dates: start: 20240108, end: 20240108
  12. PEMBROLIZUMAB [Suspect]
     Active Substance: PEMBROLIZUMAB
     Dosage: 200 MG
     Route: 042
     Dates: start: 20240130
  13. APREPITANT [Concomitant]
     Active Substance: APREPITANT
     Indication: Premedication
     Route: 048
     Dates: start: 20231219
  14. BECLOMETHASONE\FORMOTEROL [Concomitant]
     Active Substance: BECLOMETHASONE\FORMOTEROL
     Indication: Prophylaxis
     Route: 055
     Dates: start: 20221111
  15. DEXAMETHASONE [Concomitant]
     Active Substance: DEXAMETHASONE
     Indication: Premedication
     Route: 048
     Dates: start: 20231219
  16. EZETIMIBE [Concomitant]
     Active Substance: EZETIMIBE
     Indication: Hypercholesterolaemia
     Route: 048
     Dates: start: 2015
  17. FOLIC ACID [Concomitant]
     Active Substance: FOLIC ACID
     Indication: Prophylaxis
     Route: 048
     Dates: start: 20231207
  18. GRANISETRON [Concomitant]
     Active Substance: GRANISETRON
     Indication: Premedication
     Route: 048
     Dates: start: 20231219
  19. HYDROCHLOROTHIAZIDE [Concomitant]
     Active Substance: HYDROCHLOROTHIAZIDE
     Indication: Hypertension
     Route: 048
     Dates: start: 2015
  20. HYDROXOCOBALAMIN [Concomitant]
     Active Substance: HYDROXOCOBALAMIN
     Indication: Prophylaxis
     Route: 030
     Dates: start: 20231207
  21. LACTULOSE [Concomitant]
     Active Substance: LACTULOSE
     Indication: Constipation
     Route: 048
     Dates: start: 20240129
  22. POLYETHYLENE GLYCOLS [Concomitant]
     Active Substance: POLYETHYLENE GLYCOLS
     Indication: Constipation
     Route: 048
     Dates: start: 20231221
  23. METOCLOPRAMIDE [Concomitant]
     Active Substance: METOCLOPRAMIDE
     Indication: Premedication
     Route: 048
     Dates: start: 20231219
  24. Sodium lauril sulfoacetate [Concomitant]
     Indication: Abdominal pain
     Route: 054
     Dates: start: 20240227
  25. SORBITOL [Concomitant]
     Active Substance: SORBITOL
     Indication: Abdominal pain
     Dosage: UNK
     Route: 065
     Dates: start: 20240227
  26. SORBITOL [Concomitant]
     Active Substance: SORBITOL
     Dosage: UNK
     Route: 065
     Dates: start: 20240227
  27. VALSARTAN [Concomitant]
     Active Substance: VALSARTAN
     Indication: Hypertension
     Route: 048
     Dates: start: 2015

REACTIONS (1)
  - Angiopathy [Recovered/Resolved]

NARRATIVE: CASE EVENT DATE: 20240227
